FAERS Safety Report 9263806 (Version 1)
Quarter: 2013Q2

REPORT INFORMATION
  Report Type: Spontaneous
  Country: US (occurrence: US)
  Receive Date: 20130430
  Receipt Date: 20130430
  Transmission Date: 20140414
  Serious: Yes (Hospitalization)
  Sender: FDA-Public Use
  Company Number: US-BAYER-2013-053346

PATIENT
  Age: 24 Year
  Sex: Female

DRUGS (2)
  1. YAZ [Suspect]
  2. ANTIBIOTICS [Concomitant]

REACTIONS (3)
  - Pulmonary embolism [None]
  - Pleuritic pain [None]
  - Atelectasis [None]
